FAERS Safety Report 5447009-7 (Version None)
Quarter: 2007Q3

REPORT INFORMATION
  Report Type: 
  Country: None (occurrence: None)
  Receive Date: 20070810
  Receipt Date: 20061212
  Transmission Date: 20080115
  Serious: Yes (Other)
  Sender: FDA-Public Use
  Company Number: A03200607404

PATIENT
  Age: 58 Year
  Sex: Male

DRUGS (3)
  1. UROXATRAL [Suspect]
     Indication: DYSURIA
     Dosage: 10 MG ONCE - ORAL
     Route: 048
     Dates: start: 20061204, end: 20061204
  2. UROXATRAL [Suspect]
     Indication: PROSTATE EXAMINATION ABNORMAL
     Dosage: 10 MG ONCE - ORAL
     Route: 048
     Dates: start: 20061204, end: 20061204
  3. ASPIRIN [Concomitant]

REACTIONS (6)
  - AMNESIA [None]
  - CONCUSSION [None]
  - DIZZINESS [None]
  - FALL [None]
  - HYPOTENSION [None]
  - SYNCOPE [None]
